FAERS Safety Report 10192795 (Version 1)
Quarter: 2014Q2

REPORT INFORMATION
  Report Type: Spontaneous
  Country: US (occurrence: US)
  Receive Date: 20140523
  Receipt Date: 20140523
  Transmission Date: 20141212
  Serious: No
  Sender: FDA-Public Use
  Company Number: US-BAYER-2014-075295

PATIENT
  Sex: Male

DRUGS (4)
  1. PHILLIPS^ MILK OF MAGNESIA LIQUID CHERRY [Suspect]
     Indication: DYSPEPSIA
     Dosage: 1 TSP, PRN
     Route: 048
  2. BAYER GENUINE ASPIRIN ORIGINAL STRENGTH [Suspect]
     Route: 048
  3. ALEVE CAPLET [Suspect]
     Route: 048
  4. ASPIRIN [Concomitant]

REACTIONS (2)
  - Abdominal discomfort [None]
  - Intentional product misuse [None]
